FAERS Safety Report 19585503 (Version 1)
Quarter: 2021Q3

REPORT INFORMATION
  Report Type: Spontaneous
  Country: US (occurrence: US)
  Receive Date: 20210720
  Receipt Date: 20210720
  Transmission Date: 20211014
  Serious: No
  Sender: FDA-Public Use
  Company Number: US-ROCHE-2704289

PATIENT
  Sex: Male

DRUGS (5)
  1. TAXOL [Suspect]
     Active Substance: PACLITAXEL
     Indication: PRODUCT USED FOR UNKNOWN INDICATION
     Route: 065
     Dates: start: 2020
  2. CARBOPLATIN. [Concomitant]
     Active Substance: CARBOPLATIN
  3. TECENTRIQ [Suspect]
     Active Substance: ATEZOLIZUMAB
     Indication: LUNG NEOPLASM MALIGNANT
     Dosage: ONGOING: YES
     Route: 042
     Dates: start: 2020
  4. KEYTRUDA [Concomitant]
     Active Substance: PEMBROLIZUMAB
  5. AVASTIN [Suspect]
     Active Substance: BEVACIZUMAB
     Indication: PRODUCT USED FOR UNKNOWN INDICATION
     Dosage: ONGOING UNKNOWN
     Route: 042

REACTIONS (6)
  - Nausea [Unknown]
  - Impaired healing [Unknown]
  - Fatigue [Unknown]
  - Adverse drug reaction [Recovered/Resolved]
  - Lethargy [Unknown]
  - White blood cell count decreased [Unknown]
